FAERS Safety Report 20896937 (Version 1)
Quarter: 2022Q2

REPORT INFORMATION
  Report Type: Spontaneous
  Country: US (occurrence: US)
  Receive Date: 20220531
  Receipt Date: 20220531
  Transmission Date: 20220721
  Serious: Yes (Hospitalization, Other)
  Sender: FDA-Public Use
  Company Number: US-MLMSERVICE-20220518-3564218-1

PATIENT
  Age: 81 Year
  Sex: Female

DRUGS (2)
  1. QUETIAPINE FUMARATE [Suspect]
     Active Substance: QUETIAPINE FUMARATE
     Indication: Memory impairment
     Dosage: UNK
     Route: 065
  2. QUETIAPINE FUMARATE [Suspect]
     Active Substance: QUETIAPINE FUMARATE
     Indication: Affective disorder
     Dosage: 100 MG, BID (INCREASED), EVERY 12-HOUR
     Route: 065

REACTIONS (3)
  - Dry mouth [Recovered/Resolved]
  - Staphylococcal parotitis [Recovered/Resolved]
  - Staphylococcal infection [Recovered/Resolved]
